FAERS Safety Report 22606398 (Version 1)
Quarter: 2023Q2

REPORT INFORMATION
  Report Type: Report from Study
  Country: CO (occurrence: CO)
  Receive Date: 20230615
  Receipt Date: 20230615
  Transmission Date: 20230721
  Serious: Yes (Hospitalization)
  Sender: FDA-Public Use
  Company Number: CO-EUROCEPT-EC20230061

PATIENT

DRUGS (3)
  1. PHEBURANE [Suspect]
     Active Substance: SODIUM PHENYLBUTYRATE
     Indication: Hyperammonaemia
     Dosage: 3,78 GR EVERY 24 HOURS)
     Route: 048
     Dates: start: 20221013
  2. LACTULOSE [Concomitant]
     Active Substance: LACTULOSE
     Indication: Product used for unknown indication
     Dosage: 66.7G/100ML SYRUP (1 SACHET - GIVE 2.5ML ORALLY EVERY 8 HOURS)
     Route: 048
  3. ACETAMINOPHEN [Concomitant]
     Active Substance: ACETAMINOPHEN
     Indication: Pyrexia
     Dosage: (1 BOTTLE - GIVE 4.4 ML ORALLY EVERY 6 HOURS, ONLY IN CASE OF FEVER).
     Route: 048

REACTIONS (2)
  - Ammonia increased [Unknown]
  - Pyrexia [Unknown]

NARRATIVE: CASE EVENT DATE: 20230526
